FAERS Safety Report 8127363-8 (Version None)
Quarter: 2012Q1

REPORT INFORMATION
  Report Type: 
  Country: None (occurrence: None)
  Receive Date: 20120210
  Receipt Date: 20120201
  Transmission Date: 20120608
  Serious: Yes (Hospitalization, Other)
  Sender: FDA-Public Use
  Company Number: CA-JNJFOC-20120202571

PATIENT
  Sex: Male
  Weight: 111 kg

DRUGS (9)
  1. LOMOTIL [Concomitant]
     Route: 065
  2. CELEBREX [Concomitant]
     Route: 065
  3. REMICADE [Suspect]
     Indication: CROHN'S DISEASE
     Route: 042
     Dates: start: 20070209
  4. ENTOCORT EC [Concomitant]
     Route: 065
  5. FLOMAX [Concomitant]
     Route: 065
  6. PREVACID [Concomitant]
     Route: 065
  7. CODEINE PHOSPHATE [Concomitant]
     Route: 065
  8. METHOTREXATE [Concomitant]
     Route: 065
  9. FOLIC ACID [Concomitant]
     Route: 065

REACTIONS (1)
  - NEPHROLITHIASIS [None]
